FAERS Safety Report 11310241 (Version 1)
Quarter: 2015Q3

REPORT INFORMATION
  Report Type: Spontaneous
  Country: US (occurrence: US)
  Receive Date: 20150724
  Receipt Date: 20150724
  Transmission Date: 20151125
  Serious: No
  Sender: FDA-Public Use
  Company Number: US-009507513-1507USA005465

PATIENT
  Age: 79 Year
  Sex: Female

DRUGS (1)
  1. ZETIA [Suspect]
     Active Substance: EZETIMIBE
     Route: 048

REACTIONS (4)
  - Vomiting [Unknown]
  - Headache [Unknown]
  - Balance disorder [Unknown]
  - Nausea [Unknown]

NARRATIVE: CASE EVENT DATE: 20150710
